FAERS Safety Report 22014278 (Version 3)
Quarter: 2023Q4

REPORT INFORMATION
  Report Type: Other
  Country: US (occurrence: None)
  Receive Date: 20230221
  Receipt Date: 20231011
  Transmission Date: 20240110
  Serious: No
  Sender: FDA-Public Use
  Company Number: US-ROCHE-3289583

PATIENT
  Age: 65 Year
  Sex: Female

DRUGS (5)
  1. OCREVUS [Suspect]
     Active Substance: OCRELIZUMAB
     Indication: Relapsing multiple sclerosis
     Dosage: INFUSE 600MG INTRAVENOUSLY ONCE EVERY 24 WEEK(S) AFTER DAY ONE?DATE OF SERVICE: 20/APR/2021
     Route: 042
     Dates: start: 20210420
  2. OCREVUS [Suspect]
     Active Substance: OCRELIZUMAB
     Route: 042
     Dates: start: 20200929
  3. TYSABRI [Concomitant]
     Active Substance: NATALIZUMAB
  4. BUPROPION [Concomitant]
     Active Substance: BUPROPION
  5. VALACYCLOVIR [Concomitant]
     Active Substance: VALACYCLOVIR HYDROCHLORIDE

REACTIONS (1)
  - COVID-19 [Recovered/Resolved]

NARRATIVE: CASE EVENT DATE: 20230101
